FAERS Safety Report 23583975 (Version 1)
Quarter: 2024Q1

REPORT INFORMATION
  Report Type: Spontaneous
  Country: US (occurrence: US)
  Receive Date: 20240301
  Receipt Date: 20240301
  Transmission Date: 20240410
  Serious: No
  Sender: FDA-Public Use
  Company Number: US-PADAGIS-2024PAD00272

PATIENT

DRUGS (1)
  1. PODOFILOX [Suspect]
     Active Substance: PODOFILOX
     Indication: Skin papilloma
     Dosage: UNK
     Route: 061
     Dates: start: 20240209, end: 20240211

REACTIONS (4)
  - Application site vesicles [Unknown]
  - Application site pain [Unknown]
  - Skin depigmentation [Unknown]
  - Drug ineffective for unapproved indication [Unknown]

NARRATIVE: CASE EVENT DATE: 20240211
